FAERS Safety Report 15372524 (Version 2)
Quarter: 2018Q4

REPORT INFORMATION
  Report Type: Report from Study
  Country: CO (occurrence: CO)
  Receive Date: 20180911
  Receipt Date: 20181015
  Transmission Date: 20190204
  Serious: Yes (Hospitalization)
  Sender: FDA-Public Use
  Company Number: PHHY2018CO090941

PATIENT
  Sex: Female
  Weight: 40 kg

DRUGS (1)
  1. SANDOSTATIN LAR DEPOT [Suspect]
     Active Substance: OCTREOTIDE ACETATE
     Indication: GASTROENTEROPANCREATIC NEUROENDOCRINE TUMOUR DISEASE
     Dosage: 30 MG, QMO
     Route: 030
     Dates: start: 20170201

REACTIONS (7)
  - Tremor [Unknown]
  - Muscle spasms [Unknown]
  - Vomiting [Recovering/Resolving]
  - Malaise [Recovering/Resolving]
  - Skin discolouration [Unknown]
  - Diarrhoea haemorrhagic [Recovering/Resolving]
  - Pain [Recovering/Resolving]
